FAERS Safety Report 8089598-2 (Version None)
Quarter: 2012Q1

REPORT INFORMATION
  Report Type: 
  Country: None (occurrence: None)
  Receive Date: 20120128
  Receipt Date: 20110711
  Transmission Date: 20120608
  Serious: No
  Sender: FDA-Public Use
  Company Number: US-ABBOTT-11P-163-0837886-00

PATIENT
  Age: 37 Year
  Sex: Female

DRUGS (2)
  1. HUMIRA [Suspect]
  2. HUMIRA [Suspect]
     Indication: CROHN'S DISEASE
     Dosage: 160MG DAY 1, 80MG DAY 15
     Dates: start: 20110624

REACTIONS (5)
  - INJECTION SITE REACTION [None]
  - HYPOAESTHESIA [None]
  - PAIN [None]
  - PRURITUS [None]
  - RASH PAPULAR [None]
